FAERS Safety Report 10136656 (Version 2)
Quarter: 2014Q2

REPORT INFORMATION
  Report Type: Spontaneous
  Country: US (occurrence: US)
  Receive Date: 20140429
  Receipt Date: 20140612
  Transmission Date: 20141212
  Serious: Yes (Death, Hospitalization, Other)
  Sender: FDA-Public Use
  Company Number: US-BAYER-2014-058665

PATIENT
  Age: 66 Year
  Sex: Female
  Weight: 81.18 kg

DRUGS (3)
  1. ADEMPAS [Suspect]
     Indication: PULMONARY ARTERIAL HYPERTENSION
     Dosage: UNK
     Route: 048
     Dates: start: 20140304, end: 20140407
  2. REMODULIN [Concomitant]
     Dosage: UNK
     Dates: start: 2012
  3. TRACLEER [Concomitant]

REACTIONS (4)
  - Death [Fatal]
  - Oedema [None]
  - Ascites [None]
  - Pulmonary arterial hypertension [None]
